FAERS Safety Report 6748171-6 (Version None)
Quarter: 2010Q2

REPORT INFORMATION
  Report Type: 
  Country: None (occurrence: None)
  Receive Date: 20100531
  Receipt Date: 20100513
  Transmission Date: 20101027
  Serious: Yes (Other)
  Sender: FDA-Public Use
  Company Number: IE-BAXTER-2010BH013811

PATIENT
  Age: 59 Year
  Sex: Female
  Weight: 73 kg

DRUGS (23)
  1. SODIUM CHLORIDE 0.9% IN PLASTIC CONTAINER [Suspect]
     Indication: BREAST CANCER
     Route: 042
     Dates: start: 20100429, end: 20100429
  2. SODIUM CHLORIDE 0.9% IN PLASTIC CONTAINER [Suspect]
     Route: 042
     Dates: start: 20100429, end: 20100429
  3. SODIUM CHLORIDE 0.9% IN PLASTIC CONTAINER [Suspect]
     Route: 042
     Dates: start: 20100429, end: 20100429
  4. SODIUM CHLORIDE 0.9% IN PLASTIC CONTAINER [Suspect]
     Route: 042
     Dates: start: 20100429, end: 20100429
  5. SODIUM CHLORIDE 0.9% IN PLASTIC CONTAINER [Suspect]
     Route: 042
     Dates: start: 20100429, end: 20100429
  6. SODIUM CHLORIDE 0.9% IN PLASTIC CONTAINER [Suspect]
     Route: 042
     Dates: start: 20100429, end: 20100429
  7. SODIUM CHLORIDE 0.9% IN PLASTIC CONTAINER [Suspect]
     Route: 042
     Dates: start: 20100429, end: 20100429
  8. SODIUM CHLORIDE 0.9% IN PLASTIC CONTAINER [Suspect]
     Route: 042
     Dates: start: 20100429, end: 20100429
  9. SODIUM CHLORIDE 0.9% IN PLASTIC CONTAINER [Suspect]
     Route: 042
     Dates: start: 20100429, end: 20100429
  10. SODIUM CHLORIDE 0.9% IN PLASTIC CONTAINER [Suspect]
     Route: 042
     Dates: start: 20100429, end: 20100429
  11. DOCETAXEL [Suspect]
     Indication: BREAST CANCER
     Route: 042
     Dates: start: 20100429, end: 20100429
  12. DOCETAXEL [Suspect]
     Route: 042
     Dates: start: 20100429, end: 20100429
  13. DOCETAXEL [Suspect]
     Route: 042
     Dates: start: 20100429, end: 20100429
  14. DOCETAXEL [Suspect]
     Route: 042
     Dates: start: 20100429, end: 20100429
  15. DOCETAXEL [Suspect]
     Route: 042
     Dates: start: 20100429, end: 20100429
  16. DOCETAXEL [Suspect]
     Route: 042
     Dates: start: 20100429, end: 20100429
  17. DOCETAXEL [Suspect]
     Route: 042
     Dates: start: 20100429, end: 20100429
  18. DOCETAXEL [Suspect]
     Route: 042
     Dates: start: 20100429, end: 20100429
  19. DOCETAXEL [Suspect]
     Route: 042
     Dates: start: 20100429, end: 20100429
  20. DOCETAXEL [Suspect]
     Route: 042
     Dates: start: 20100429, end: 20100429
  21. ALOXI [Concomitant]
     Indication: PROPHYLAXIS OF NAUSEA AND VOMITING
     Route: 042
     Dates: start: 20100429, end: 20100429
  22. DEXAMETHASONE [Concomitant]
     Indication: PREMEDICATION
     Route: 042
     Dates: start: 20100429, end: 20100429
  23. DEXAMETHASONE [Concomitant]
     Indication: PROPHYLAXIS OF NAUSEA AND VOMITING
     Route: 048
     Dates: start: 20100429, end: 20100429

REACTIONS (5)
  - CHEST DISCOMFORT [None]
  - DYSPNOEA [None]
  - FLUSHING [None]
  - HYPERSENSITIVITY [None]
  - RASH [None]
